FAERS Safety Report 4908138-7 (Version None)
Quarter: 2006Q1

REPORT INFORMATION
  Report Type: 
  Country: None (occurrence: None)
  Receive Date: 20060210
  Receipt Date: 20060201
  Transmission Date: 20060701
  Serious: Yes (Other)
  Sender: FDA-Public Use
  Company Number: US-JNJFOC-20040104577

PATIENT
  Sex: Female
  Weight: 64.41 kg

DRUGS (15)
  1. REMICADE [Suspect]
     Dosage: EVERY SIX WEEKS
     Route: 042
     Dates: start: 20010201, end: 20031006
  2. METHOTREXATE [Suspect]
  3. AREDIA [Concomitant]
     Indication: OSTEOPOROSIS
  4. FOLIC ACID [Concomitant]
  5. BEXTRA [Concomitant]
  6. ZYRTEC [Concomitant]
  7. ASPIRIN [Concomitant]
     Indication: CARDIOVASCULAR EVENT PROPHYLAXIS
  8. LORTAB [Concomitant]
  9. LORTAB [Concomitant]
  10. NEXIUM [Concomitant]
  11. SPIRONOLACTONE [Concomitant]
  12. SKELAXIN [Concomitant]
     Dosage: AS NEEDED
  13. HYDROCODONE BITARTRATE [Concomitant]
     Indication: PAIN
     Dosage: 5/500 AND AS NEEDED
  14. TYLENOL W/ CODEINE NO. 3 [Concomitant]
  15. TYLENOL W/ CODEINE NO. 3 [Concomitant]
     Indication: PAIN
     Dosage: AS NEEDED

REACTIONS (14)
  - BENIGN BREAST NEOPLASM [None]
  - CARPAL TUNNEL SYNDROME [None]
  - CHOLELITHIASIS [None]
  - CHRONIC LYMPHOCYTIC LEUKAEMIA [None]
  - DEPRESSION [None]
  - DISEASE PROGRESSION [None]
  - HYSTERECTOMY [None]
  - LYMPHOCYTIC LYMPHOMA [None]
  - NON-HODGKIN'S LYMPHOMA [None]
  - OSTEOARTHRITIS [None]
  - OSTEOPOROSIS [None]
  - PSORIASIS [None]
  - RAYNAUD'S PHENOMENON [None]
  - SPINAL FUSION SURGERY [None]
